FAERS Safety Report 25460120 (Version 1)
Quarter: 2025Q2

REPORT INFORMATION
  Report Type: Spontaneous
  Country: NL (occurrence: NL)
  Receive Date: 20250620
  Receipt Date: 20250620
  Transmission Date: 20250717
  Serious: Yes (Other)
  Sender: MSN LABORATORIES PRIVATE LIMITED
  Company Number: None

PATIENT

DRUGS (6)
  1. ATORVASTATIN [Suspect]
     Active Substance: ATORVASTATIN
     Indication: Blood cholesterol
     Dosage: 1 PER DAG AL 5 JAAR LANG
     Route: 048
     Dates: start: 20190421
  2. CLOPIDOGREL BISULFATE [Suspect]
     Active Substance: CLOPIDOGREL BISULFATE
     Indication: Cardiovascular disorder
     Route: 048
     Dates: start: 20190421
  3. CLOPIDOGREL BISULFATE [Suspect]
     Active Substance: CLOPIDOGREL BISULFATE
     Indication: Blood pressure measurement
  4. CLOPIDOGREL BISULFATE [Suspect]
     Active Substance: CLOPIDOGREL BISULFATE
     Indication: Blood cholesterol
  5. IRBESARTAN [Suspect]
     Active Substance: IRBESARTAN
     Indication: Product used for unknown indication
     Dosage: 1 PER DAG AL 5 JAAR LANG
     Route: 048
     Dates: start: 20190421
  6. METOPROLOL SUCCINATE [Suspect]
     Active Substance: METOPROLOL SUCCINATE
     Indication: Product used for unknown indication
     Dosage: 1 PER DAG AL 5 JAAR LANG
     Route: 048
     Dates: start: 20190421

REACTIONS (5)
  - Deafness [Recovering/Resolving]
  - Product substitution issue [Unknown]
  - Balance disorder [Recovering/Resolving]
  - Rhinorrhoea [Recovering/Resolving]
  - Tinnitus [Recovering/Resolving]

NARRATIVE: CASE EVENT DATE: 20241201
